FAERS Safety Report 4299101-0 (Version None)
Quarter: 2004Q1

REPORT INFORMATION
  Report Type: 
  Country: None (occurrence: None)
  Receive Date: 20040217
  Receipt Date: 20040121
  Transmission Date: 20041129
  Serious: Yes (Hospitalization)
  Sender: FDA-Public Use
  Company Number: 001#0#2004-00013

PATIENT
  Age: 80 Year
  Sex: Female

DRUGS (11)
  1. ISOKET-RETARD-120 (ISOSORBIDE DINITRATE) [Suspect]
     Indication: CORONARY ARTERY DISEASE
     Dosage: 120 MG (120 MG 1 IN 1 DAY(S)) ORAL
     Route: 048
     Dates: start: 20020101
  2. ALLOPURINOL [Concomitant]
  3. XIPAMIDE [Concomitant]
  4. ACETYLSALICYLIC ACID SRT [Concomitant]
  5. MOLSIDOMINE [Concomitant]
  6. CARVEDILOL [Concomitant]
  7. LEVOTHYROXINE SODIUM [Concomitant]
  8. ATORVASTATIN [Concomitant]
  9. TORSEMIDE [Concomitant]
  10. ENALAPRIL MALEATE [Concomitant]
  11. INSULIN HUMAN [Concomitant]

REACTIONS (11)
  - ALANINE AMINOTRANSFERASE ABNORMAL [None]
  - ASPARTATE AMINOTRANSFERASE INCREASED [None]
  - ASTHENIA [None]
  - BLOOD ALKALINE PHOSPHATASE ABNORMAL [None]
  - BLOOD CREATININE INCREASED [None]
  - BLOOD PRESSURE SYSTOLIC INCREASED [None]
  - DIZZINESS [None]
  - DRUG INTERACTION [None]
  - GAMMA-GLUTAMYLTRANSFERASE ABNORMAL [None]
  - GLYCOSYLATED HAEMOGLOBIN INCREASED [None]
  - PLATELET COUNT DECREASED [None]
